FAERS Safety Report 6198258-4 (Version None)
Quarter: 2009Q2

REPORT INFORMATION
  Report Type: 
  Country: None (occurrence: None)
  Receive Date: 20090519
  Receipt Date: 20090511
  Transmission Date: 20091009
  Serious: Yes (Hospitalization)
  Sender: FDA-Public Use
  Company Number: IPS_01631_2009

PATIENT
  Sex: Male

DRUGS (3)
  1. APOKYN [Suspect]
     Indication: DRUG USE FOR UNKNOWN INDICATION
     Dosage: (0.4 ML 1X  SUBCUTANEOUS)
     Route: 058
     Dates: start: 20090416
  2. APOKYN [Suspect]
     Indication: DRUG USE FOR UNKNOWN INDICATION
     Dosage: 0.2 ML 1X SUBCUTANEOUS, (LESS THAN 0.3 ML 2X SUBCUTANEOUS)
     Route: 058
     Dates: start: 20090401, end: 20090401
  3. APOKYN [Suspect]
     Indication: DRUG USE FOR UNKNOWN INDICATION
     Dosage: 0.2 ML 1X SUBCUTANEOUS, (LESS THAN 0.3 ML 2X SUBCUTANEOUS)
     Route: 058
     Dates: start: 20090402, end: 20090402

REACTIONS (5)
  - ABNORMAL BEHAVIOUR [None]
  - AGGRESSION [None]
  - CONFUSIONAL STATE [None]
  - FALL [None]
  - UNRESPONSIVE TO STIMULI [None]
